FAERS Safety Report 16122934 (Version 3)
Quarter: 2019Q3

REPORT INFORMATION
  Report Type: Report from Study
  Country: AU (occurrence: AU)
  Receive Date: 20190327
  Receipt Date: 20190706
  Transmission Date: 20191004
  Serious: Yes (Hospitalization, Other)
  Sender: FDA-Public Use
  Company Number: AU-JNJFOC-20190329294

PATIENT
  Age: 77 Year
  Sex: Female

DRUGS (7)
  1. IMBRUVICA [Suspect]
     Active Substance: IBRUTINIB
     Indication: CHRONIC LYMPHOCYTIC LEUKAEMIA
     Route: 048
     Dates: start: 20160901
  2. VASOCARDOL [Concomitant]
     Indication: ANGINA PECTORIS
     Route: 048
  3. EZETROL [Concomitant]
     Active Substance: EZETIMIBE
     Indication: BLOOD CHOLESTEROL
     Route: 048
  4. TRAJENTA [Concomitant]
     Active Substance: LINAGLIPTIN
     Indication: TYPE 2 DIABETES MELLITUS
     Route: 048
  5. GEMFIBROZIL. [Concomitant]
     Active Substance: GEMFIBROZIL
     Indication: BLOOD CHOLESTEROL
     Route: 048
  6. GAMMA GLOBULIN [Concomitant]
     Active Substance: IMMUNE GLOBULIN NOS
     Indication: CHRONIC LYMPHOCYTIC LEUKAEMIA
     Dosage: 4/52 IV
     Route: 042
  7. NOTEN [Concomitant]
     Active Substance: ATENOLOL
     Indication: BLOOD PRESSURE MEASUREMENT
     Route: 048

REACTIONS (13)
  - Myalgia [Unknown]
  - Red blood cell count decreased [Unknown]
  - Back injury [Not Recovered/Not Resolved]
  - Hypotension [Unknown]
  - Malignant melanoma [Unknown]
  - Asthenia [Not Recovered/Not Resolved]
  - Renal impairment [Unknown]
  - Urinary retention [Unknown]
  - Hypoaesthesia [Recovered/Resolved]
  - Skin cancer [Unknown]
  - Haematoma [Unknown]
  - Paraesthesia [Unknown]
  - Urinary tract infection [Unknown]
